FAERS Safety Report 9176699 (Version 1)
Quarter: 2013Q1

REPORT INFORMATION
  Report Type: Spontaneous
  Country: US (occurrence: US)
  Receive Date: 20130321
  Receipt Date: 20130321
  Transmission Date: 20140127
  Serious: No
  Sender: FDA-Public Use
  Company Number: US-009507513-1303USA008526

PATIENT
  Age: 45 Year
  Sex: Male

DRUGS (3)
  1. VICTRELIS [Suspect]
     Dosage: UNKNOWN
  2. PEGINTRON [Suspect]
     Dosage: UNKNOWN
  3. REBETOL [Suspect]
     Dosage: UNKNOWN

REACTIONS (1)
  - No therapeutic response [Unknown]
